FAERS Safety Report 13105518 (Version 1)
Quarter: 2017Q1

REPORT INFORMATION
  Report Type: Spontaneous
  Country: US (occurrence: US)
  Receive Date: 20170111
  Receipt Date: 20170111
  Transmission Date: 20170428
  Serious: Yes (Hospitalization)
  Sender: FDA-Public Use
  Company Number: None

PATIENT
  Age: 35 Year
  Sex: Male
  Weight: 99.6 kg

DRUGS (4)
  1. DOXORUBICIN HYDROCHLORIDE. [Suspect]
     Active Substance: DOXORUBICIN HYDROCHLORIDE
     Dates: end: 20161117
  2. BLEOMYCIN [Suspect]
     Active Substance: BLEOMYCIN SULFATE
     Dosage: 3 UNIT?
     Dates: end: 20161117
  3. DACARBAZINE. [Suspect]
     Active Substance: DACARBAZINE
     Dates: end: 20161117
  4. VINBLASTINE SULFATE. [Suspect]
     Active Substance: VINBLASTINE SULFATE
     Dates: end: 20161117

REACTIONS (3)
  - Sepsis [None]
  - Staphylococcal infection [None]
  - Vena cava thrombosis [None]

NARRATIVE: CASE EVENT DATE: 20161127
